FAERS Safety Report 4389528-0 (Version None)
Quarter: 2004Q2

REPORT INFORMATION
  Report Type: 
  Country: None (occurrence: None)
  Receive Date: 20040628
  Receipt Date: 20040616
  Transmission Date: 20050107
  Serious: Yes (Life-Threatening, Hospitalization, Disabling)
  Sender: FDA-Public Use
  Company Number: GB-JNJFOC-20040101337

PATIENT
  Age: 67 Year
  Sex: Male
  Weight: 80 kg

DRUGS (6)
  1. RISPERDAL [Suspect]
     Indication: SCHIZOPHRENIA
     Dosage: SEE IMAGE
     Route: 048
     Dates: start: 20030201, end: 20031009
  2. RISPERDAL [Suspect]
     Indication: SCHIZOPHRENIA
     Dosage: SEE IMAGE
     Route: 048
     Dates: start: 20031009, end: 20031209
  3. LOFEPRAMINE (LOFEPRAMINE) [Concomitant]
  4. ORPHENADRINE CITRATE [Concomitant]
  5. LITHIUM CARBONATE [Concomitant]
  6. PARACETAMOL (PARACETAMOL) [Concomitant]

REACTIONS (2)
  - ISCHAEMIC STROKE [None]
  - THERMAL BURN [None]
